FAERS Safety Report 6760812-6 (Version None)
Quarter: 2010Q2

REPORT INFORMATION
  Report Type: 
  Country: None (occurrence: None)
  Receive Date: 20100607
  Receipt Date: 20100607
  Transmission Date: 20101027
  Serious: Yes (Hospitalization)
  Sender: FDA-Public Use
  Company Number: None

PATIENT
  Age: 73 Year
  Sex: Female
  Weight: 86 kg

DRUGS (1)
  1. LAMOTRIGINE [Suspect]
     Indication: CONVULSION PROPHYLAXIS
     Dosage: 50 MG BID PO
     Route: 048
     Dates: start: 20100505, end: 20100531

REACTIONS (4)
  - BLOOD CREATININE INCREASED [None]
  - LIVER FUNCTION TEST ABNORMAL [None]
  - RASH ERYTHEMATOUS [None]
  - RASH MACULO-PAPULAR [None]
